FAERS Safety Report 10659748 (Version 3)
Quarter: 2015Q1

REPORT INFORMATION
  Report Type: Spontaneous
  Country: BR (occurrence: BR)
  Receive Date: 20141217
  Receipt Date: 20150126
  Transmission Date: 20150720
  Serious: Yes (Other)
  Sender: FDA-Public Use
  Company Number: BR-PFIZER INC-2014340302

PATIENT
  Age: 75 Year
  Sex: Female
  Weight: 97 kg

DRUGS (3)
  1. LABIRIN [Concomitant]
     Active Substance: BETAHISTINE
     Indication: LABYRINTHITIS
     Dosage: 1 DF (TABLET), DAILY
     Dates: start: 1968
  2. LIPITOR [Suspect]
     Active Substance: ATORVASTATIN CALCIUM
     Indication: BLOOD CHOLESTEROL INCREASED
     Dosage: 10 MG, DAILY
     Route: 048
     Dates: start: 1999, end: 201410
  3. FLUXENE [Concomitant]
     Indication: ANTIDEPRESSANT THERAPY
     Dosage: 1 TABLET OF ^20^, DAILY
     Dates: start: 2006

REACTIONS (6)
  - Hypertension [Unknown]
  - Malaise [Not Recovered/Not Resolved]
  - Fibromyalgia [Not Recovered/Not Resolved]
  - Myalgia [Unknown]
  - Pain [Not Recovered/Not Resolved]
  - Dizziness [Unknown]

NARRATIVE: CASE EVENT DATE: 2014
